FAERS Safety Report 8886671 (Version 4)
Quarter: 2013Q4

REPORT INFORMATION
  Report Type: Spontaneous
  Country: BR (occurrence: BR)
  Receive Date: 20121105
  Receipt Date: 20131129
  Transmission Date: 20140711
  Serious: Yes (Other)
  Sender: FDA-Public Use
  Company Number: PHHY2009BR29459

PATIENT
  Sex: Male
  Weight: 125 kg

DRUGS (2)
  1. STARFORM [Suspect]
     Indication: TYPE 2 DIABETES MELLITUS
     Dosage: 3 DF DAILY
     Route: 048
  2. STARFORM [Suspect]
     Dosage: 2 DF, UNK
     Route: 048

REACTIONS (6)
  - Blood glucose fluctuation [Not Recovered/Not Resolved]
  - Libido disorder [Not Recovered/Not Resolved]
  - Musculoskeletal discomfort [Recovering/Resolving]
  - Neck pain [Recovering/Resolving]
  - Spermatozoa abnormal [Not Recovered/Not Resolved]
  - Tremor [Recovering/Resolving]
